FAERS Safety Report 10162490 (Version 2)
Quarter: 2014Q2

REPORT INFORMATION
  Report Type: Report from Study
  Country: TR (occurrence: TR)
  Receive Date: 20140509
  Receipt Date: 20140613
  Transmission Date: 20141212
  Serious: Yes (Other)
  Sender: FDA-Public Use
  Company Number: TR-US-EMD SERONO, INC.-7289161

PATIENT
  Age: 48 Year
  Sex: Female
  Weight: 65 kg

DRUGS (4)
  1. REBIF [Suspect]
     Indication: MULTIPLE SCLEROSIS
     Dates: start: 2006, end: 20140423
  2. REBIF [Suspect]
  3. RYTMONORM [Concomitant]
     Indication: PRODUCT USED FOR UNKNOWN INDICATION
  4. MINOSET [Concomitant]
     Indication: PRODUCT USED FOR UNKNOWN INDICATION

REACTIONS (2)
  - Myocardial infarction [Recovered/Resolved]
  - Insomnia [Not Recovered/Not Resolved]
